FAERS Safety Report 5215144-4 (Version None)
Quarter: 2007Q1

REPORT INFORMATION
  Report Type: 
  Country: None (occurrence: None)
  Receive Date: 20070117
  Receipt Date: 20070109
  Transmission Date: 20070707
  Serious: Yes (Other)
  Sender: FDA-Public Use
  Company Number: OSCN-GE-0701S-0015

PATIENT
  Age: 63 Year
  Sex: Female

DRUGS (2)
  1. OMNISCAN [Suspect]
     Indication: ANGIOPATHY
     Dosage: SEE IMAGE
     Route: 042
     Dates: start: 20020825, end: 20020825
  2. OMNISCAN [Suspect]
     Indication: ANGIOPATHY
     Dosage: SEE IMAGE
     Route: 042
     Dates: start: 20021129, end: 20021129

REACTIONS (2)
  - FIBROSIS [None]
  - NEPHROGENIC FIBROSING DERMOPATHY [None]
